FAERS Safety Report 17193388 (Version 3)
Quarter: 2020Q1

REPORT INFORMATION
  Report Type: Spontaneous
  Country: JP (occurrence: JP)
  Receive Date: 20191223
  Receipt Date: 20200206
  Transmission Date: 20200409
  Serious: Yes (Hospitalization)
  Sender: FDA-Public Use
  Company Number: JP-BAYER-2019-233088

PATIENT
  Age: 67 Year
  Sex: Male

DRUGS (3)
  1. NEXAVAR [Suspect]
     Active Substance: SORAFENIB
     Dosage: 400MG, DAILY
     Dates: start: 20190722, end: 20190929
  2. STIVARGA [Suspect]
     Active Substance: REGORAFENIB
     Indication: HEPATOCELLULAR CARCINOMA
     Dosage: DAILY DOSE 80 MG
     Route: 048
     Dates: start: 20190930, end: 20191217
  3. ENTECAVIR. [Concomitant]
     Active Substance: ENTECAVIR
     Indication: HEPATITIS B

REACTIONS (2)
  - Angina unstable [Recovered/Resolved]
  - Off label use [None]

NARRATIVE: CASE EVENT DATE: 20191217
